FAERS Safety Report 9665032 (Version 3)
Quarter: 2013Q4

REPORT INFORMATION
  Report Type: Report from Study
  Country: US (occurrence: US)
  Receive Date: 20131101
  Receipt Date: 20131122
  Transmission Date: 20140711
  Serious: Yes (Other)
  Sender: FDA-Public Use
  Company Number: GXBR2013US001896

PATIENT
  Age: 9 Year
  Sex: Female
  Weight: 26.76 kg

DRUGS (2)
  1. OMNITROPE [Suspect]
     Indication: BODY HEIGHT BELOW NORMAL
     Dosage: 1.2 MG, QD
     Dates: start: 201308, end: 20130903
  2. NUTROPIN [Suspect]
     Indication: BODY HEIGHT BELOW NORMAL
     Dosage: UNK DF, UNK
     Dates: end: 201308

REACTIONS (6)
  - Uveitis [Recovering/Resolving]
  - Condition aggravated [Recovering/Resolving]
  - Visual impairment [Recovering/Resolving]
  - Eye pain [Recovering/Resolving]
  - Iridocyclitis [Not Recovered/Not Resolved]
  - Chorioretinitis [Not Recovered/Not Resolved]
